FAERS Safety Report 6905302-2 (Version None)
Quarter: 2010Q3

REPORT INFORMATION
  Report Type: 
  Country: None (occurrence: None)
  Receive Date: 20100804
  Receipt Date: 20080906
  Transmission Date: 20110219
  Serious: No
  Sender: FDA-Public Use
  Company Number: US-PFIZER INC-2008075743

PATIENT
  Age: 31 Year
  Sex: Female
  Weight: 50.454 kg

DRUGS (1)
  1. LYRICA [Suspect]
     Dates: start: 20080901

REACTIONS (3)
  - INTENTIONAL OVERDOSE [None]
  - MUSCLE TWITCHING [None]
  - TREMOR [None]
